FAERS Safety Report 9975758 (Version 1)
Quarter: 2014Q1

REPORT INFORMATION
  Report Type: Other
  Country: US (occurrence: US)
  Receive Date: 20140306
  Receipt Date: 20140306
  Transmission Date: 20141002
  Serious: Yes (Death)
  Sender: FDA-Public Use
  Company Number: US-FRI-1000054871

PATIENT
  Age: 40 Year
  Sex: Female

DRUGS (7)
  1. CITALOPRAM [Suspect]
  2. AMITRIPTYLINE [Suspect]
  3. MORPHINE [Suspect]
  4. FENTANYL [Suspect]
  5. DIAZEPAM [Suspect]
  6. PROMETHAZINE [Suspect]
  7. DIPHENHYDRAMINE [Suspect]

REACTIONS (1)
  - Intentional drug misuse [Fatal]
